FAERS Safety Report 16122948 (Version 1)
Quarter: 2019Q1

REPORT INFORMATION
  Report Type: Report from Study
  Country: US (occurrence: US)
  Receive Date: 20190327
  Receipt Date: 20190327
  Transmission Date: 20190418
  Serious: Yes (Hospitalization)
  Sender: FDA-Public Use
  Company Number: US-CORCEPT THERAPEUTICS INC.-US-2019CRT000330

PATIENT

DRUGS (5)
  1. KORLYM [Suspect]
     Active Substance: MIFEPRISTONE
     Indication: CUSHING^S SYNDROME
     Dosage: 300 MG QD
     Route: 048
     Dates: start: 201606, end: 201608
  2. KORLYM [Suspect]
     Active Substance: MIFEPRISTONE
     Dosage: 600 MG  QD
     Route: 048
     Dates: start: 201608, end: 201707
  3. KORLYM [Suspect]
     Active Substance: MIFEPRISTONE
     Dosage: 900 MG QD
     Route: 048
     Dates: start: 201707, end: 201801
  4. KORLYM [Suspect]
     Active Substance: MIFEPRISTONE
     Dosage: 1200 MG, QD
     Route: 048
     Dates: start: 201801
  5. JARDIANCE [Concomitant]
     Active Substance: EMPAGLIFLOZIN
     Indication: PRODUCT USED FOR UNKNOWN INDICATION
     Dosage: UNK

REACTIONS (9)
  - Ovarian cyst [Recovered/Resolved]
  - Post procedural infection [Recovered/Resolved]
  - Uterine polyp [Recovered/Resolved]
  - Fallopian tube cyst [Recovered/Resolved]
  - Uterine mass [Unknown]
  - Postmenopausal haemorrhage [Unknown]
  - Fungal infection [Recovered/Resolved]
  - Feeling abnormal [Recovering/Resolving]
  - Asthenia [Recovering/Resolving]

NARRATIVE: CASE EVENT DATE: 2018
